FAERS Safety Report 19188644 (Version 1)
Quarter: 2021Q2

REPORT INFORMATION
  Report Type: Report from Study
  Country: CA (occurrence: CA)
  Receive Date: 20210428
  Receipt Date: 20210428
  Transmission Date: 20210717
  Serious: Yes (Hospitalization, Other)
  Sender: FDA-Public Use
  Company Number: CA-JNJFOC-20210234380

PATIENT
  Age: 35 Year
  Sex: Male
  Weight: 88 kg

DRUGS (2)
  1. REMICADE [Suspect]
     Active Substance: INFLIXIMAB
     Indication: CROHN^S DISEASE
     Route: 042
     Dates: start: 20170925
  2. REMICADE [Suspect]
     Active Substance: INFLIXIMAB
     Indication: RHEUMATOID ARTHRITIS

REACTIONS (9)
  - Vomiting [Unknown]
  - Abdominal pain [Unknown]
  - Illness [Unknown]
  - Diarrhoea [Unknown]
  - Intestinal resection [Recovering/Resolving]
  - Malaise [Unknown]
  - Feeding disorder [Unknown]
  - Postoperative wound infection [Unknown]
  - Malnutrition [Unknown]

NARRATIVE: CASE EVENT DATE: 2021
